FAERS Safety Report 4874307-8 (Version None)
Quarter: 2006Q1

REPORT INFORMATION
  Report Type: 
  Country: None (occurrence: None)
  Receive Date: 20060106
  Receipt Date: 20051229
  Transmission Date: 20060701
  Serious: Yes (Hospitalization)
  Sender: FDA-Public Use
  Company Number: PHEH2005US13960

PATIENT
  Age: 43 Year
  Sex: Male
  Weight: 115 kg

DRUGS (4)
  1. LOTREL [Suspect]
     Indication: HYPERTENSION
     Dosage: ^5MG^, QD
     Route: 048
     Dates: start: 20030101
  2. DIOVAN [Suspect]
     Indication: HYPERTENSION
     Dosage: 5MG, QD
     Dates: start: 20050101
  3. BIFEPRUNOX [Suspect]
     Indication: SCHIZOPHRENIA
     Dates: start: 20050308, end: 20050424
  4. FAMOTIDINE [Concomitant]
     Dosage: 20MG, UNK
     Dates: start: 20030101

REACTIONS (15)
  - BLOOD CREATININE INCREASED [None]
  - BLOOD PRESSURE SYSTOLIC DECREASED [None]
  - BLOOD SODIUM DECREASED [None]
  - DEHYDRATION [None]
  - DRY MOUTH [None]
  - EJECTION FRACTION ABNORMAL [None]
  - HEART RATE INCREASED [None]
  - ORTHOSTATIC HYPOTENSION [None]
  - PYREXIA [None]
  - RENAL FAILURE [None]
  - RENAL FUNCTION TEST ABNORMAL [None]
  - SCHIZOAFFECTIVE DISORDER [None]
  - SYNCOPE [None]
  - VENTRICULAR HYPERTROPHY [None]
  - WHITE BLOOD CELL COUNT INCREASED [None]
